FAERS Safety Report 7731384-4 (Version None)
Quarter: 2011Q3

REPORT INFORMATION
  Report Type: 
  Country: None (occurrence: None)
  Receive Date: 20110906
  Receipt Date: 20110901
  Transmission Date: 20111222
  Serious: Yes (Hospitalization, Other)
  Sender: FDA-Public Use
  Company Number: US-PFIZER INC-2011143890

PATIENT
  Sex: Male

DRUGS (1)
  1. CHANTIX [Suspect]
     Indication: SMOKING CESSATION THERAPY
     Dosage: 1 MG, UNK
     Dates: start: 20080304, end: 20080701

REACTIONS (22)
  - HOMICIDAL IDEATION [None]
  - BIPOLAR DISORDER [None]
  - INSOMNIA [None]
  - DISORIENTATION [None]
  - AMNESIA [None]
  - SUICIDE ATTEMPT [None]
  - IRRITABILITY [None]
  - LETHARGY [None]
  - RESTLESSNESS [None]
  - MOOD SWINGS [None]
  - ANXIETY [None]
  - DISTURBANCE IN ATTENTION [None]
  - ASTHENIA [None]
  - WEIGHT INCREASED [None]
  - DEPRESSION [None]
  - ABNORMAL DREAMS [None]
  - THINKING ABNORMAL [None]
  - AGITATION [None]
  - AGGRESSION [None]
  - CARDIOMEGALY [None]
  - CARDIAC DISORDER [None]
  - PANIC ATTACK [None]
